FAERS Safety Report 13458962 (Version 1)
Quarter: 2017Q2

REPORT INFORMATION
  Report Type: Spontaneous
  Country: US (occurrence: US)
  Receive Date: 20170419
  Receipt Date: 20170419
  Transmission Date: 20170830
  Serious: No
  Sender: FDA-Public Use
  Company Number: US-OTSUKA-2017_005264

PATIENT
  Sex: Female

DRUGS (2)
  1. REXULTI [Suspect]
     Active Substance: BREXPIPRAZOLE
     Indication: PSYCHOTIC DISORDER
     Dosage: 0.5 MG (IN MORNING), QD
     Route: 065
     Dates: start: 201701
  2. REXULTI [Suspect]
     Active Substance: BREXPIPRAZOLE
     Dosage: 1 MG (IN EVENING),QD
     Route: 065
     Dates: start: 201701

REACTIONS (2)
  - Off label use [Unknown]
  - Breast discharge [Unknown]
